FAERS Safety Report 18780963 (Version 1)
Quarter: 2021Q1

REPORT INFORMATION
  Report Type: Spontaneous
  Country: US (occurrence: US)
  Receive Date: 20210123
  Receipt Date: 20210123
  Transmission Date: 20210419
  Serious: No
  Sender: FDA-Public Use
  Company Number: None

PATIENT
  Age: 47 Year
  Sex: Female
  Weight: 128.25 kg

DRUGS (4)
  1. FLUCONAZOLE. [Suspect]
     Active Substance: FLUCONAZOLE
     Indication: INFECTION PROPHYLAXIS
     Dosage: ?          QUANTITY:1 TABLET(S);OTHER FREQUENCY:1 X;?
     Route: 048
     Dates: start: 20210102, end: 20210102
  2. FLUCONAZOLE. [Suspect]
     Active Substance: FLUCONAZOLE
     Indication: FUNGAL INFECTION
     Dosage: ?          QUANTITY:1 TABLET(S);OTHER FREQUENCY:1 X;?
     Route: 048
     Dates: start: 20210102, end: 20210102
  3. TINDAMAX [Concomitant]
     Active Substance: TINIDAZOLE
  4. CENTRUM MULTI VITAMIN [Concomitant]

REACTIONS (3)
  - Urticaria [None]
  - Fixed eruption [None]
  - Blood iron [None]

NARRATIVE: CASE EVENT DATE: 20210108
